FAERS Safety Report 10793960 (Version 2)
Quarter: 2015Q1

REPORT INFORMATION
  Report Type: Spontaneous
  Country: NO (occurrence: NO)
  Receive Date: 20150213
  Receipt Date: 20150216
  Transmission Date: 20150721
  Serious: Yes (Disabling, Other)
  Sender: FDA-Public Use
  Company Number: NO-ASTRAZENECA-2015SE12015

PATIENT
  Age: 42 Year
  Sex: Female
  Weight: 45 kg

DRUGS (23)
  1. REMERON [Interacting]
     Active Substance: MIRTAZAPINE
     Dosage: IN PERIODS UP TO 120 MG
     Route: 048
     Dates: end: 20120412
  2. VALLERGAN [Interacting]
     Active Substance: TRIMEPRAZINE
     Route: 048
     Dates: end: 20120412
  3. ARTHROTEC [Concomitant]
     Active Substance: DICLOFENAC SODIUM\MISOPROSTOL
     Route: 048
  4. ATROVENT [Concomitant]
     Active Substance: IPRATROPIUM BROMIDE
     Route: 055
  5. REMERON [Interacting]
     Active Substance: MIRTAZAPINE
     Route: 048
     Dates: end: 20120412
  6. EFEXOR DEPOT [Interacting]
     Active Substance: VENLAFAXINE HYDROCHLORIDE
     Route: 048
     Dates: end: 20120412
  7. LYRICA [Interacting]
     Active Substance: PREGABALIN
     Dosage: IN PERIODS INCREASED TO  3 OR 4
     Route: 048
  8. FEXOFENADINE [Concomitant]
     Active Substance: FEXOFENADINE\FEXOFENADINE HYDROCHLORIDE
     Route: 048
  9. NASONEX [Concomitant]
     Active Substance: MOMETASONE FUROATE
     Route: 045
  10. LEVAXIN [Concomitant]
     Active Substance: LEVOTHYROXINE SODIUM
     Indication: HYPOTHYROIDISM
     Route: 048
  11. VALLERGAN [Interacting]
     Active Substance: TRIMEPRAZINE
     Dosage: IN PERIODS INCREASED
     Route: 048
  12. SERETIDE [Concomitant]
     Active Substance: FLUTICASONE FUROATE\SALMETEROL XINAFOATE
     Route: 055
  13. PARACET [Concomitant]
     Active Substance: ACETAMINOPHEN
     Indication: PAIN
     Route: 048
  14. THEO-DUR [Concomitant]
     Active Substance: THEOPHYLLINE ANHYDROUS
     Indication: ASTHMA
     Route: 048
  15. ZOPICLONE [Interacting]
     Active Substance: ZOPICLONE
     Indication: INSOMNIA
     Dosage: VESPERE, OFTEN HIGHER DOSE THAN 15 MG
     Route: 048
     Dates: end: 20120412
  16. SINGULAIR [Concomitant]
     Active Substance: MONTELUKAST SODIUM
     Route: 048
  17. VENTOLINE [Concomitant]
     Active Substance: ALBUTEROL
     Route: 055
  18. SEROQUEL [Suspect]
     Active Substance: QUETIAPINE FUMARATE
     Route: 048
     Dates: end: 20120412
  19. ZOPICLONE [Interacting]
     Active Substance: ZOPICLONE
     Indication: INSOMNIA
     Route: 048
     Dates: end: 20120412
  20. ATARAX [Interacting]
     Active Substance: HYDROXYZINE\HYDROXYZINE HYDROCHLORIDE
     Route: 048
     Dates: end: 20120412
  21. ATARAX [Interacting]
     Active Substance: HYDROXYZINE\HYDROXYZINE HYDROCHLORIDE
     Dosage: IN PERIODS INCREASED TO X 3
     Route: 048
  22. SEROQUEL [Interacting]
     Active Substance: QUETIAPINE FUMARATE
     Dosage: IN PERIODS UP TO AT LEAST 600 MG
     Route: 048
  23. LYRICA [Interacting]
     Active Substance: PREGABALIN
     Route: 048
     Dates: end: 20120412

REACTIONS (15)
  - Back pain [Not Recovered/Not Resolved]
  - Pain in extremity [Not Recovered/Not Resolved]
  - Weight decreased [Not Recovered/Not Resolved]
  - Post-traumatic stress disorder [Unknown]
  - Suicidal ideation [Unknown]
  - Drug interaction [Unknown]
  - Dermatitis allergic [Not Recovered/Not Resolved]
  - Fatigue [Not Recovered/Not Resolved]
  - Sleep disorder [Not Recovered/Not Resolved]
  - Muscle spasms [Unknown]
  - Paraesthesia [Not Recovered/Not Resolved]
  - Drug reaction with eosinophilia and systemic symptoms [Not Recovered/Not Resolved]
  - Neuropathy peripheral [Not Recovered/Not Resolved]
  - Drug intolerance [Unknown]
  - Withdrawal syndrome [Not Recovered/Not Resolved]

NARRATIVE: CASE EVENT DATE: 201204
